FAERS Safety Report 19195756 (Version 1)
Quarter: 2021Q2

REPORT INFORMATION
  Report Type: Spontaneous
  Country: US (occurrence: US)
  Receive Date: 20210429
  Receipt Date: 20210429
  Transmission Date: 20210717
  Serious: No
  Sender: FDA-Public Use
  Company Number: US-ABBVIE-20K-163-3501058-00

PATIENT
  Age: 78 Year
  Sex: Male

DRUGS (1)
  1. TESTOSTERONE. [Suspect]
     Active Substance: TESTOSTERONE
     Indication: PRODUCT USED FOR UNKNOWN INDICATION
     Route: 061
     Dates: start: 202007

REACTIONS (2)
  - Musculoskeletal disorder [Unknown]
  - Blood testosterone decreased [Unknown]

NARRATIVE: CASE EVENT DATE: 202007
